FAERS Safety Report 17697595 (Version 1)
Quarter: 2020Q2

REPORT INFORMATION
  Report Type: Other
  Country: FR (occurrence: FR)
  Receive Date: 20200423
  Receipt Date: 20200423
  Transmission Date: 20200714
  Serious: Yes (Death)
  Sender: FDA-Public Use
  Company Number: FR-EMCURE PHARMACEUTICALS LTD-2020-EPL-000500

PATIENT
  Age: 63 Year
  Sex: Female
  Weight: 49 kg

DRUGS (8)
  1. ETOPOSIDE. [Suspect]
     Active Substance: ETOPOSIDE
     Indication: B-CELL LYMPHOMA
     Dosage: 200 MILLIGRAM/SQ. METER EVERY 12 HOURS
     Route: 042
     Dates: start: 20200109, end: 20200112
  2. CYTARABINE. [Suspect]
     Active Substance: CYTARABINE
     Indication: B-CELL LYMPHOMA
     Dosage: 200 MILLIGRAM/SQ. METER EVERY 12 HOURS
     Route: 042
     Dates: start: 20200109, end: 20200112
  3. TOPALGIC [Concomitant]
     Dosage: 1 CAPSULE EVERY 4 HOURS IF PAIN
     Route: 048
  4. MELPHALAN. [Suspect]
     Active Substance: MELPHALAN
     Indication: B-CELL LYMPHOMA
     Dosage: 140 MILLIGRAM/SQ. METER
     Route: 042
     Dates: start: 20200113, end: 20200113
  5. PRIMPERAN [Concomitant]
     Active Substance: METOCLOPRAMIDE HYDROCHLORIDE
     Dosage: SCORED TABLET, 2 CP 3 TIMES / DAY MAXIMUM
     Route: 048
  6. ONDANSETRON [Concomitant]
     Active Substance: ONDANSETRON
     Dosage: 8 MILLIGRAM EVERY 12 HOURS
     Route: 048
  7. EUPANTOL [Concomitant]
     Active Substance: PANTOPRAZOLE SODIUM
     Dosage: 20 MILLIGRAM DAILY
     Route: 048
  8. CARMUSTINE. [Suspect]
     Active Substance: CARMUSTINE
     Indication: B-CELL LYMPHOMA
     Dosage: 300 MILLIGRAM/SQ. METER
     Route: 042
     Dates: start: 20200108, end: 20200108

REACTIONS (2)
  - Pneumonia respiratory syncytial viral [Fatal]
  - Febrile bone marrow aplasia [Fatal]

NARRATIVE: CASE EVENT DATE: 20200117
